FAERS Safety Report 7816125-4 (Version None)
Quarter: 2011Q4

REPORT INFORMATION
  Report Type: 
  Country: None (occurrence: None)
  Receive Date: 20111015
  Receipt Date: 20110921
  Transmission Date: 20120403
  Serious: Yes (Life-Threatening)
  Sender: FDA-Public Use
  Company Number: FR-ROCHE-1000798

PATIENT
  Sex: Male

DRUGS (4)
  1. FLUOROURACIL [Suspect]
     Route: 042
  2. AVASTIN [Suspect]
     Indication: COLON CANCER METASTATIC
     Route: 042
     Dates: start: 20110104, end: 20110813
  3. IRINOTECAN HCL [Suspect]
     Indication: COLON CANCER METASTATIC
     Route: 042
     Dates: start: 20110104, end: 20110608
  4. FLUOROURACIL [Suspect]
     Indication: COLON CANCER METASTATIC
     Route: 040
     Dates: start: 20110104, end: 20110608

REACTIONS (1)
  - ACUTE LYMPHOCYTIC LEUKAEMIA [None]
